FAERS Safety Report 8995351 (Version 1)
Quarter: 2013Q1

REPORT INFORMATION
  Report Type: Spontaneous
  Country: US (occurrence: US)
  Receive Date: 20130103
  Receipt Date: 20130103
  Transmission Date: 20140127
  Serious: No
  Sender: FDA-Public Use
  Company Number: US-ABBOTT-12P-163-0926740-00

PATIENT
  Age: 61 Year
  Sex: Female
  Weight: 77.18 kg

DRUGS (2)
  1. SYNTHROID [Suspect]
     Indication: HYPOTHYROIDISM
     Dates: start: 201201, end: 20120412
  2. VITAMINS [Concomitant]
     Indication: SUPPLEMENTATION THERAPY

REACTIONS (7)
  - Skin reaction [Recovered/Resolved]
  - Pruritus [Recovered/Resolved]
  - Rash maculo-papular [Unknown]
  - Wound secretion [Unknown]
  - Skin exfoliation [Unknown]
  - Eczema [Unknown]
  - Dermatitis [Unknown]
